FAERS Safety Report 7446190-8 (Version None)
Quarter: 2011Q2

REPORT INFORMATION
  Report Type: 
  Country: None (occurrence: None)
  Receive Date: 20110429
  Receipt Date: 20110419
  Transmission Date: 20111010
  Serious: Yes (Other)
  Sender: FDA-Public Use
  Company Number: CA-US-EMD SERONO, INC.-230161J09CAN

PATIENT
  Sex: Male

DRUGS (1)
  1. REBIF [Suspect]
     Indication: RELAPSING-REMITTING MULTIPLE SCLEROSIS
     Dates: start: 20091022

REACTIONS (11)
  - MICTURITION URGENCY [None]
  - URINE ODOUR ABNORMAL [None]
  - MALIGNANT MELANOMA [None]
  - NECK PAIN [None]
  - ABDOMINAL DISCOMFORT [None]
  - HEPATIC ENZYME INCREASED [None]
  - SLEEP DISORDER [None]
  - POLLAKIURIA [None]
  - FATIGUE [None]
  - HYPERTENSION [None]
  - CONSTIPATION [None]
